FAERS Safety Report 10003546 (Version 5)
Quarter: 2016Q4

REPORT INFORMATION
  Report Type: Spontaneous
  Country: US (occurrence: US)
  Receive Date: 20140312
  Receipt Date: 20161208
  Transmission Date: 20170206
  Serious: No
  Sender: FDA-Public Use
  Company Number: US-INCYTE CORPORATION-2013IN001222

PATIENT
  Age: 79 Year
  Sex: Female
  Weight: 86.17 kg

DRUGS (5)
  1. JAKAFI [Suspect]
     Active Substance: RUXOLITINIB
     Dosage: 10 MG, BID
     Route: 048
  2. JAKAFI [Suspect]
     Active Substance: RUXOLITINIB
     Dosage: 5 MG, UNK
     Route: 048
  3. JAKAFI [Suspect]
     Active Substance: RUXOLITINIB
     Indication: MYELOFIBROSIS
     Dosage: 20 MG, BID
     Route: 048
     Dates: start: 20130101
  4. REVLIMID [Concomitant]
     Active Substance: LENALIDOMIDE
     Indication: PRODUCT USED FOR UNKNOWN INDICATION
     Dosage: 5 MG, UNK
  5. NORVASC [Concomitant]
     Active Substance: AMLODIPINE BESYLATE
     Indication: PRODUCT USED FOR UNKNOWN INDICATION
     Dosage: 5 MG, UNK

REACTIONS (14)
  - White blood cell count increased [Unknown]
  - Gout [Unknown]
  - Fatigue [Unknown]
  - Red blood cell count decreased [Unknown]
  - Muscle spasms [Unknown]
  - Pruritus [Not Recovered/Not Resolved]
  - White blood cell count decreased [Recovering/Resolving]
  - Haemoglobin decreased [Unknown]
  - Peripheral swelling [Not Recovered/Not Resolved]
  - Anaemia [Unknown]
  - Blood triglycerides decreased [Unknown]
  - Oedema peripheral [Unknown]
  - Blood cholesterol decreased [Unknown]
  - Blood count abnormal [Unknown]

NARRATIVE: CASE EVENT DATE: 201305
